FAERS Safety Report 7973666-7 (Version None)
Quarter: 2011Q4

REPORT INFORMATION
  Report Type: 
  Country: None (occurrence: None)
  Receive Date: 20111213
  Receipt Date: 20111206
  Transmission Date: 20120403
  Serious: Yes (Death, Other)
  Sender: FDA-Public Use
  Company Number: US-ELI_LILLY_AND_COMPANY-US201112002602

PATIENT

DRUGS (4)
  1. FOLIC ACID [Concomitant]
     Dosage: 400 UG, UNK
  2. GEMCITABINE HYDROCHLORIDE [Suspect]
     Indication: TRANSITIONAL CELL CARCINOMA
     Dosage: 1000 MG/M2, UNK
  3. VITAMIN B-12 [Concomitant]
  4. PEMETREXED [Suspect]
     Indication: TRANSITIONAL CELL CARCINOMA
     Dosage: 500 MG/M2, UNK
     Route: 042

REACTIONS (1)
  - INFECTION [None]
